FAERS Safety Report 15234945 (Version 1)
Quarter: 2018Q3

REPORT INFORMATION
  Report Type: Spontaneous
  Country: US (occurrence: US)
  Receive Date: 20180803
  Receipt Date: 20180803
  Transmission Date: 20181010
  Serious: Yes (Other)
  Sender: FDA-Public Use
  Company Number: US-ACCORD-065247

PATIENT
  Age: 38 Year
  Sex: Female
  Weight: 86.18 kg

DRUGS (16)
  1. MOBIC [Concomitant]
     Active Substance: MELOXICAM
  2. COZAAR [Concomitant]
     Active Substance: LOSARTAN POTASSIUM
  3. LOSARTAN. [Concomitant]
     Active Substance: LOSARTAN
     Dates: start: 2013
  4. ALOXI [Concomitant]
     Active Substance: PALONOSETRON HYDROCHLORIDE
  5. HERCEPTIN [Suspect]
     Active Substance: TRASTUZUMAB
     Indication: BREAST CANCER
     Dosage: NUMBER OF CYCLES: 06
     Route: 042
     Dates: start: 20150202, end: 20150518
  6. PLAQUENIL [Concomitant]
     Active Substance: HYDROXYCHLOROQUINE SULFATE
  7. BENADRYL [Concomitant]
     Active Substance: DIPHENHYDRAMINE HYDROCHLORIDE
     Route: 048
  8. TYLENOL [Concomitant]
     Active Substance: ACETAMINOPHEN
  9. DECADRON [Concomitant]
     Active Substance: DEXAMETHASONE
  10. PROVERA [Concomitant]
     Active Substance: MEDROXYPROGESTERONE ACETATE
  11. GLICLAZIDE [Concomitant]
     Active Substance: GLICLAZIDE
  12. PARAPLATIN [Suspect]
     Active Substance: CARBOPLATIN
     Indication: BREAST CANCER
     Dosage: NUMBER OF CYCLES: 06
     Route: 042
     Dates: start: 20150202, end: 20150518
  13. FOLINIC ACID [Concomitant]
     Active Substance: LEUCOVORIN
     Dates: start: 2015
  14. EMEND [Concomitant]
     Active Substance: APREPITANT
  15. DOCETAXEL ACCORD [Suspect]
     Active Substance: DOCETAXEL
     Indication: BREAST CANCER
     Dosage: NUMBER OF CYCLES: 06
     Route: 042
     Dates: start: 20150202, end: 20150518
  16. CIMETIDINE [Concomitant]
     Active Substance: CIMETIDINE
     Route: 048

REACTIONS (1)
  - Alopecia [Not Recovered/Not Resolved]

NARRATIVE: CASE EVENT DATE: 201511
